FAERS Safety Report 5081778-3 (Version None)
Quarter: 2006Q3

REPORT INFORMATION
  Report Type: 
  Country: None (occurrence: None)
  Receive Date: 20060816
  Receipt Date: 20060814
  Transmission Date: 20061208
  Serious: Yes (Other)
  Sender: FDA-Public Use
  Company Number: PR-GLAXOSMITHKLINE-A0616589A

PATIENT
  Age: 5 Year
  Sex: Female

DRUGS (2)
  1. ADVAIR DISKUS 100/50 [Suspect]
     Indication: DRUG USE FOR UNKNOWN INDICATION
     Route: 055
     Dates: start: 20060719
  2. TANAFED [Concomitant]

REACTIONS (8)
  - ACCIDENTAL OVERDOSE [None]
  - ANAEMIA [None]
  - COUGH [None]
  - IRRITABILITY [None]
  - NERVOUSNESS [None]
  - PYREXIA [None]
  - SINUS TACHYCARDIA [None]
  - TREMOR [None]
